FAERS Safety Report 4645125-0 (Version None)
Quarter: 2005Q2

REPORT INFORMATION
  Report Type: 
  Country: None (occurrence: None)
  Receive Date: 20050422
  Receipt Date: 20050415
  Transmission Date: 20051028
  Serious: Yes (Other)
  Sender: FDA-Public Use
  Company Number: GBWYE434617FEB05

PATIENT
  Age: 47 Year
  Sex: Male

DRUGS (2)
  1. EFFEXOR [Suspect]
     Indication: DEPRESSION
     Dosage: SEE IMAGE
  2. EFFEXOR [Suspect]
     Dosage: 37.5 MG 2X PER 1 DAY
     Dates: start: 20050201

REACTIONS (7)
  - AGGRESSION [None]
  - DISORIENTATION [None]
  - DRUG WITHDRAWAL SYNDROME [None]
  - INAPPROPRIATE AFFECT [None]
  - PALPITATIONS [None]
  - SUICIDAL IDEATION [None]
  - TACHYCARDIA [None]
